FAERS Safety Report 10997634 (Version 1)
Quarter: 2015Q2

REPORT INFORMATION
  Report Type: Report from Study
  Country: US (occurrence: US)
  Receive Date: 20150408
  Receipt Date: 20150408
  Transmission Date: 20150821
  Serious: Yes (Other)
  Sender: FDA-Public Use
  Company Number: US-AMGEN-USASL2015032787

PATIENT
  Age: 56 Year
  Sex: Female

DRUGS (1)
  1. ENBREL [Suspect]
     Active Substance: ETANERCEPT
     Indication: PSORIATIC ARTHROPATHY
     Dosage: 50 MG, QWK
     Route: 065
     Dates: start: 20101001

REACTIONS (3)
  - Joint stiffness [Not Recovered/Not Resolved]
  - Psoriasis [Not Recovered/Not Resolved]
  - Ear infection staphylococcal [Not Recovered/Not Resolved]

NARRATIVE: CASE EVENT DATE: 201503
